FAERS Safety Report 24308182 (Version 1)
Quarter: 2024Q3

REPORT INFORMATION
  Report Type: Other
  Country: US (occurrence: US)
  Receive Date: 20240911
  Receipt Date: 20240911
  Transmission Date: 20241016
  Serious: No
  Sender: SIGMA TAU
  Company Number: US-LEADIANT BIOSCIENCES, INC.-2024LBI000128

PATIENT
  Sex: Male

DRUGS (1)
  1. MATULANE [Suspect]
     Active Substance: PROCARBAZINE HYDROCHLORIDE
     Indication: Brain neoplasm malignant
     Dosage: 50 MILLIGRAM, 1 CAPSULE (50 MG TOTAL) EVERY DAY FOR 14 DAYS
     Route: 048
     Dates: start: 20231003

REACTIONS (4)
  - Nerve injury [Unknown]
  - Pain in extremity [Unknown]
  - Insomnia [Unknown]
  - Product dose omission issue [Unknown]
